FAERS Safety Report 9772748 (Version 1)
Quarter: 2013Q4

REPORT INFORMATION
  Report Type: Spontaneous
  Country: US (occurrence: None)
  Receive Date: 20131218
  Receipt Date: 20131218
  Transmission Date: 20140711
  Serious: Yes (Life-Threatening)
  Sender: FDA-Public Use
  Company Number: None

PATIENT
  Age: 76 Year
  Sex: Male
  Weight: 61.2 kg

DRUGS (1)
  1. PIPERACILLIN/TAZOBACTAM [Suspect]
     Indication: ASPIRATION
     Route: 042
     Dates: start: 20131024, end: 20131102

REACTIONS (4)
  - Atrial fibrillation [None]
  - Aspiration [None]
  - Thrombocytopenia [None]
  - Heparin-induced thrombocytopenia test [None]
